FAERS Safety Report 4665726-3 (Version None)
Quarter: 2005Q2

REPORT INFORMATION
  Report Type: 
  Country: None (occurrence: None)
  Receive Date: 20050519
  Receipt Date: 20050317
  Transmission Date: 20051028
  Serious: Yes (Death)
  Sender: FDA-Public Use
  Company Number: GB-BOEHRINGER INGELHEIM PHARMACEUTICALS, INC.-2005-UK-00470UK

PATIENT
  Sex: Female

DRUGS (12)
  1. TIOTROPIUM (00015/0190/A) [Suspect]
     Indication: CHRONIC OBSTRUCTIVE PULMONARY DISEASE
     Route: 055
  2. SALBUTAMOL [Suspect]
     Dosage: 2 PUFFS 4 HOURLY AS REQUIRED
     Route: 055
  3. AQUEOUS CREAM [Suspect]
  4. LACTULOSE SOLUTION [Suspect]
     Dosage: 3.35G/5ML 10-20ML BD 500ML
  5. SENNA TABLETS [Suspect]
     Dosage: 7.5MG 1-2 AT NIGHT
  6. LANSOPRAZOLE [Suspect]
     Route: 048
  7. SALBUTAMOL [Suspect]
     Dosage: 5MG/2.5ML (ONE FOUR TIMES DAILY)
  8. SERETIDE 125 EVOHALER [Suspect]
     Dosage: 2 PUFFS TWICE DAILY
     Route: 055
  9. AEROCHAMBER SPACER DEVICE [Concomitant]
  10. QUININE SULPHATE [Suspect]
  11. DEXAMETHASONE [Suspect]
     Route: 048
  12. PARACETAMOL [Suspect]

REACTIONS (1)
  - NON-HODGKIN'S LYMPHOMA [None]
